FAERS Safety Report 25234648 (Version 1)
Quarter: 2025Q2

REPORT INFORMATION
  Report Type: Spontaneous
  Country: JP (occurrence: JP)
  Receive Date: 20250424
  Receipt Date: 20250424
  Transmission Date: 20250716
  Serious: Yes (Life-Threatening, Hospitalization, Other)
  Sender: ACCORD
  Company Number: JP-Accord-480559

PATIENT
  Age: 60 Year
  Sex: Female

DRUGS (1)
  1. AMLODIPINE [Suspect]
     Active Substance: AMLODIPINE BESYLATE
     Route: 048

REACTIONS (8)
  - Altered state of consciousness [Recovered/Resolved]
  - Shock [Recovered/Resolved]
  - Circulatory collapse [Recovered/Resolved]
  - Liver injury [Recovered/Resolved]
  - Atrial fibrillation [Recovered/Resolved]
  - Intentional overdose [Unknown]
  - Suicide attempt [Unknown]
  - Toxicity to various agents [Unknown]
